FAERS Safety Report 12993240 (Version 1)
Quarter: 2016Q4

REPORT INFORMATION
  Report Type: Spontaneous
  Country: US (occurrence: US)
  Receive Date: 20161202
  Receipt Date: 20161202
  Transmission Date: 20170207
  Serious: Yes (Hospitalization, Other)
  Sender: FDA-Public Use
  Company Number: US-ZYDUS-012810

PATIENT
  Age: 83 Year
  Sex: Female

DRUGS (1)
  1. WARFARIN [Suspect]
     Active Substance: WARFARIN
     Indication: ATRIAL FIBRILLATION
     Route: 065

REACTIONS (5)
  - Abdominal pain lower [Unknown]
  - Rectal ulcer [Unknown]
  - Haematochezia [Unknown]
  - Traumatic haematoma [Unknown]
  - Fall [Unknown]
